FAERS Safety Report 24640267 (Version 1)
Quarter: 2024Q4

REPORT INFORMATION
  Report Type: Spontaneous
  Country: ES (occurrence: ES)
  Receive Date: 20241120
  Receipt Date: 20241120
  Transmission Date: 20250115
  Serious: Yes (Hospitalization, Other)
  Sender: AUROBINDO
  Company Number: ES-ACRAF SpA-2024-035194

PATIENT
  Age: 50 Year
  Sex: Male

DRUGS (7)
  1. ESLICARBAZEPINE ACETATE [Interacting]
     Active Substance: ESLICARBAZEPINE ACETATE
     Indication: Product used for unknown indication
     Dosage: ON STARTING CENOBAMATE, HE FELT UNWELL ON ESLICARBAZEPINE; HE GRADUALLY REDUCED THE DOSE AND EVENTUA
     Route: 065
  2. CENOBAMATE [Interacting]
     Active Substance: CENOBAMATE
     Indication: Epilepsy
     Dosage: 150 MILLIGRAM, ONCE A DAY ON TREATMENT WITH 150 MG/DAY A MONTH AGO.()
     Route: 065
  3. CENOBAMATE [Interacting]
     Active Substance: CENOBAMATE
     Dosage: UNK
     Route: 048
     Dates: start: 20240612
  4. CENOBAMATE [Interacting]
     Active Substance: CENOBAMATE
     Dosage: 200 MILLIGRAM, ONCE A DAY
     Route: 065
  5. BRIVIACT [Concomitant]
     Active Substance: BRIVARACETAM
     Indication: Product used for unknown indication
     Dosage: 100 MILLIGRAM, ONCE A DAY (100MG/12H)
     Route: 065
  6. VIMPAT [Concomitant]
     Active Substance: LACOSAMIDE
     Indication: Product used for unknown indication
     Dosage: 200 MILLIGRAM (1-0-1)
     Route: 065
  7. CLOBAZAM [Concomitant]
     Active Substance: CLOBAZAM
     Indication: Nervousness
     Dosage: 10 MILLIGRAM (0-0-10MG) HIS DOCTOR HAS INSTRUCTED HIM TO TAKE HALF A CLOBAZAM TABLET (5MG, IN ADDITI
     Route: 065

REACTIONS (9)
  - Seizure [Not Recovered/Not Resolved]
  - Loss of consciousness [Not Recovered/Not Resolved]
  - Lip injury [Recovering/Resolving]
  - Dizziness [Unknown]
  - Fall [Unknown]
  - Drug interaction [Not Recovered/Not Resolved]
  - Off label use [Not Recovered/Not Resolved]
  - Drug ineffective [Not Recovered/Not Resolved]
  - Nervousness [Not Recovered/Not Resolved]
